FAERS Safety Report 11363353 (Version 1)
Quarter: 2015Q3

REPORT INFORMATION
  Report Type: Spontaneous
  Country: US (occurrence: US)
  Receive Date: 20150811
  Receipt Date: 20150811
  Transmission Date: 20151125
  Serious: No
  Sender: FDA-Public Use
  Company Number: US-TEVA-515271USA

PATIENT
  Age: 35 Year
  Sex: Male

DRUGS (1)
  1. ORAP [Suspect]
     Active Substance: PIMOZIDE
     Indication: TOURETTE^S DISORDER
     Dosage: 4 MILLIGRAM DAILY;
     Dates: start: 1992, end: 2014

REACTIONS (11)
  - Dizziness [Not Recovered/Not Resolved]
  - Head titubation [Not Recovered/Not Resolved]
  - Excessive eye blinking [Not Recovered/Not Resolved]
  - Tremor [Not Recovered/Not Resolved]
  - Blepharospasm [Not Recovered/Not Resolved]
  - Swelling face [Not Recovered/Not Resolved]
  - Mood altered [Not Recovered/Not Resolved]
  - Dizziness [Not Recovered/Not Resolved]
  - Pruritus [Not Recovered/Not Resolved]
  - Abnormal behaviour [Not Recovered/Not Resolved]
  - Rash [Not Recovered/Not Resolved]

NARRATIVE: CASE EVENT DATE: 2007
